FAERS Safety Report 9370134 (Version 1)
Quarter: 2013Q2

REPORT INFORMATION
  Report Type: Spontaneous
  Country: HR (occurrence: HR)
  Receive Date: 20130626
  Receipt Date: 20130626
  Transmission Date: 20140414
  Serious: Yes (Other)
  Sender: FDA-Public Use
  Company Number: PHHY2013HR065622

PATIENT
  Age: 70 Year
  Sex: Female

DRUGS (2)
  1. KLAVOCIN BID [Suspect]
     Indication: PHARYNGITIS STREPTOCOCCAL
     Dosage: 2 DF, PER DAY
     Route: 048
     Dates: start: 20130522, end: 20130524
  2. RAMZID [Concomitant]
     Indication: HYPERTENSION
     Dosage: 1 DF, PER DAY
     Route: 048
     Dates: start: 20090201

REACTIONS (3)
  - Choking sensation [Recovered/Resolved]
  - Rash generalised [Recovered/Resolved]
  - Pruritus [Recovered/Resolved]
